FAERS Safety Report 5554483-4 (Version None)
Quarter: 2007Q4

REPORT INFORMATION
  Report Type: 
  Country: None (occurrence: None)
  Receive Date: 20071210
  Receipt Date: 20071210
  Transmission Date: 20080405
  Serious: Yes (Other)
  Sender: FDA-Public Use
  Company Number: None

PATIENT
  Sex: Female
  Weight: 116.1208 kg

DRUGS (2)
  1. OXYCODONE HCL EXTENDED-RELEASE [Suspect]
     Indication: BACK PAIN
     Dosage: PO QID
     Route: 048
  2. OXYCODONE HCL EXTENDED-RELEASE [Suspect]
     Indication: INTERVERTEBRAL DISC DEGENERATION
     Dosage: PO QID
     Route: 048

REACTIONS (2)
  - DRUG INEFFECTIVE [None]
  - INADEQUATE ANALGESIA [None]
